FAERS Safety Report 24124389 (Version 1)
Quarter: 2024Q3

REPORT INFORMATION
  Report Type: Report from Study
  Country: CH (occurrence: CH)
  Receive Date: 20240723
  Receipt Date: 20240723
  Transmission Date: 20241016
  Serious: Yes (Death)
  Sender: ABBVIE
  Company Number: CH-ABBVIE-5848442

PATIENT
  Age: 74 Year
  Sex: Male
  Weight: 100 kg

DRUGS (3)
  1. CARBIDOPA\LEVODOPA [Suspect]
     Active Substance: CARBIDOPA\LEVODOPA
     Indication: Parkinson^s disease
     Dosage: MD: 5.0 ML, CRD: 4.1 ML/H, ED: 2.0 ML?FREQUENCY TEXT: 16H THERAPY
     Route: 050
     Dates: start: 20240514, end: 20240721
  2. CARBIDOPA\LEVODOPA [Suspect]
     Active Substance: CARBIDOPA\LEVODOPA
     Dosage: MD: 5.0 ML, CRD: 4.1 ML/H, ED: 2.0 ML?FREQUENCY TEXT: 16H THERAPY
     Route: 050
     Dates: start: 20240506, end: 20240514
  3. CARBIDOPA\LEVODOPA [Suspect]
     Active Substance: CARBIDOPA\LEVODOPA
     Route: 050
     Dates: start: 20140115

REACTIONS (1)
  - Death [Fatal]

NARRATIVE: CASE EVENT DATE: 20240721
